FAERS Safety Report 8107353-1 (Version None)
Quarter: 2012Q1

REPORT INFORMATION
  Report Type: 
  Country: None (occurrence: None)
  Receive Date: 20120202
  Receipt Date: 20120201
  Transmission Date: 20120608
  Serious: Yes (Other)
  Sender: FDA-Public Use
  Company Number: US-B.I. PHARMACEUTICALS,INC./RIDGEFIELD-2011-BP-12061BP

PATIENT
  Sex: Male

DRUGS (15)
  1. PRADAXA [Suspect]
     Indication: ATRIAL FIBRILLATION
     Dosage: 300 MG
     Route: 048
     Dates: start: 20110308, end: 20110418
  2. PLAVIX [Suspect]
     Indication: PROPHYLAXIS
     Dosage: 75 MG
     Route: 048
     Dates: start: 20111202
  3. PHENAZOPYRIDINE HCL TAB [Suspect]
     Dates: start: 20110421, end: 20110425
  4. PRADAXA [Suspect]
     Dosage: 300 MG
     Route: 048
     Dates: start: 20111202
  5. ASPIRIN [Suspect]
     Dosage: 81 MG
     Route: 048
     Dates: start: 20111202
  6. RAMIPRIL [Concomitant]
     Indication: HYPERTENSION
  7. POTASSIUM [Concomitant]
     Indication: MINERAL SUPPLEMENTATION
  8. ASPIRIN [Suspect]
     Indication: PROPHYLAXIS
     Dates: end: 20110427
  9. PLAVIX [Suspect]
     Indication: CARDIAC DISORDER
     Dates: start: 20081101, end: 20110427
  10. CARDIZEM [Concomitant]
     Indication: ATRIAL FIBRILLATION
  11. PRADAXA [Suspect]
     Dosage: 300 MG
     Route: 048
     Dates: start: 20110423, end: 20110427
  12. BETAPACE [Concomitant]
     Indication: ATRIAL FIBRILLATION
  13. CIPROFLOXACIN [Concomitant]
     Dates: start: 20110421, end: 20110426
  14. SIMVASTATIN [Concomitant]
     Indication: BLOOD CHOLESTEROL INCREASED
  15. LASIX [Concomitant]
     Indication: JOINT SWELLING

REACTIONS (3)
  - HAEMORRHAGE [None]
  - BLOOD URINE PRESENT [None]
  - GINGIVAL BLEEDING [None]
